FAERS Safety Report 5935408-6 (Version None)
Quarter: 2008Q4

REPORT INFORMATION
  Report Type: 
  Country: None (occurrence: None)
  Receive Date: 20081030
  Receipt Date: 20081020
  Transmission Date: 20090506
  Serious: Yes (Other)
  Sender: FDA-Public Use
  Company Number: US-ELI_LILLY_AND_COMPANY-US200810004846

PATIENT
  Sex: Male
  Weight: 112.47 kg

DRUGS (9)
  1. EXENATIDE [Suspect]
     Indication: DIABETES MELLITUS
     Dosage: 10 UG, 2/D
     Dates: start: 20080905, end: 20081016
  2. EXENATIDE [Suspect]
     Dosage: 5 UG, 2/D
     Dates: start: 20081019, end: 20081020
  3. EXENATIDE [Suspect]
     Dosage: 10 UG, 2/D
     Dates: start: 20081021
  4. CARDURA [Concomitant]
     Indication: HYPERTENSION
     Dosage: 2 MG, UNK
     Dates: start: 19980828
  5. LIPITOR [Concomitant]
     Indication: BLOOD CHOLESTEROL INCREASED
     Dosage: 20 MG, UNK
     Dates: start: 20010309
  6. ALDACTONE [Concomitant]
     Indication: DIURETIC THERAPY
     Dates: start: 19961115
  7. VERAPAMIL [Concomitant]
     Indication: HYPERTENSION
     Dates: start: 20020723
  8. PRILOSEC [Concomitant]
     Indication: GASTROOESOPHAGEAL REFLUX DISEASE
     Dates: start: 20010309
  9. PRANDIN [Concomitant]
     Indication: DIABETES MELLITUS
     Dates: start: 20050113

REACTIONS (1)
  - DYSPEPSIA [None]
